FAERS Safety Report 20655856 (Version 1)
Quarter: 2022Q1

REPORT INFORMATION
  Report Type: Spontaneous
  Country: CA (occurrence: CA)
  Receive Date: 20220330
  Receipt Date: 20220330
  Transmission Date: 20220423
  Serious: Yes (Hospitalization, Disabling)
  Sender: FDA-Public Use
  Company Number: CA-TEVA-2022-CA-2021145

PATIENT
  Age: 59 Year
  Sex: Male
  Weight: 108 kg

DRUGS (29)
  1. METHOTREXATE [Suspect]
     Active Substance: METHOTREXATE
     Indication: Acute lymphocytic leukaemia
     Route: 037
  2. CYTARABINE [Suspect]
     Active Substance: CYTARABINE
     Indication: Acute lymphocytic leukaemia
     Route: 037
  3. CYTARABINE [Suspect]
     Active Substance: CYTARABINE
     Indication: Acute lymphocytic leukaemia
     Dosage: 14800 MILLIGRAM DAILY; THERAPY DURATION:2.0 DAYS
     Route: 041
  4. ALLOPURINOL [Concomitant]
     Active Substance: ALLOPURINOL
  5. AMLODIPINE [Concomitant]
     Active Substance: AMLODIPINE BESYLATE
     Route: 065
  6. CALCIUM [Concomitant]
     Active Substance: CALCIUM
  7. SPRYCEL [Concomitant]
     Active Substance: DASATINIB
  8. DECADRON [Concomitant]
     Active Substance: DEXAMETHASONE
  9. FLUCONAZOLE [Concomitant]
     Active Substance: FLUCONAZOLE
  10. FOLIC ACID [Concomitant]
     Active Substance: FOLIC ACID
  11. GLICLAZIDE [Concomitant]
     Active Substance: GLICLAZIDE
  12. HUMULIN NOS [Concomitant]
     Active Substance: INSULIN HUMAN
  13. HYDROMORPHONE [Concomitant]
     Active Substance: HYDROMORPHONE
  14. POLYETHYLENE GLYCOL 3350 [Concomitant]
     Active Substance: POLYETHYLENE GLYCOL 3350
  15. LORAZEPAM [Concomitant]
     Active Substance: LORAZEPAM
     Route: 065
  16. METFORMIN [Concomitant]
     Active Substance: METFORMIN HYDROCHLORIDE
  17. NADOLOL [Concomitant]
     Active Substance: NADOLOL
  18. NIVESTYM [Concomitant]
     Active Substance: FILGRASTIM-AAFI
  19. ONGLYZA [Concomitant]
     Active Substance: SAXAGLIPTIN HYDROCHLORIDE
  20. PANTOPRAZOLE [Concomitant]
     Active Substance: PANTOPRAZOLE
  21. PRAMIPEXOLE [Concomitant]
     Active Substance: PRAMIPEXOLE
  22. PROCHLORPERAZINE [Concomitant]
     Active Substance: PROCHLORPERAZINE
  23. QUETIAPINE [Concomitant]
     Active Substance: QUETIAPINE
  24. RAMIPRIL [Concomitant]
     Active Substance: RAMIPRIL
     Route: 065
  25. ROSUVASTATIN [Concomitant]
     Active Substance: ROSUVASTATIN
     Route: 065
  26. ALBUTEROL [Concomitant]
     Active Substance: ALBUTEROL
  27. VENLAFAXINE [Concomitant]
     Active Substance: VENLAFAXINE HYDROCHLORIDE
  28. VENOFER [Concomitant]
     Active Substance: IRON SUCROSE
  29. VITAMIN D [Concomitant]
     Active Substance: VITAMIN D NOS

REACTIONS (11)
  - Acute kidney injury [Not Recovered/Not Resolved]
  - Bacteraemia [Not Recovered/Not Resolved]
  - Brain oedema [Not Recovered/Not Resolved]
  - Cerebellar syndrome [Not Recovered/Not Resolved]
  - Chorioretinitis [Not Recovered/Not Resolved]
  - Clostridium difficile infection [Not Recovered/Not Resolved]
  - Hepatotoxicity [Not Recovered/Not Resolved]
  - Neurotoxicity [Not Recovered/Not Resolved]
  - Pneumonia klebsiella [Not Recovered/Not Resolved]
  - Pyelonephritis acute [Not Recovered/Not Resolved]
  - Systemic candida [Not Recovered/Not Resolved]
